FAERS Safety Report 4808956-X (Version None)
Quarter: 2005Q4

REPORT INFORMATION
  Report Type: 
  Country: None (occurrence: None)
  Receive Date: 20051021
  Receipt Date: 20030618
  Transmission Date: 20060501
  Serious: Yes (Other)
  Sender: FDA-Public Use
  Company Number: AU_030606405

PATIENT
  Age: 47 Year
  Sex: Female

DRUGS (1)
  1. ZYPREXA [Suspect]
     Indication: SCHIZOPHRENIA
     Dosage: 40 MG/DAY
     Dates: start: 19990101, end: 20030601

REACTIONS (1)
  - NEUTROPENIA [None]
